FAERS Safety Report 17130150 (Version 1)
Quarter: 2019Q4

REPORT INFORMATION
  Report Type: Spontaneous
  Country: US (occurrence: US)
  Receive Date: 20191209
  Receipt Date: 20191209
  Transmission Date: 20200122
  Serious: Yes (Other)
  Sender: FDA-Public Use
  Company Number: US-PFIZER INC-2019527389

PATIENT

DRUGS (1)
  1. LIDOCAINE HCL [Suspect]
     Active Substance: LIDOCAINE HYDROCHLORIDE
     Dosage: UNK (250MG/50ML )

REACTIONS (4)
  - Loss of consciousness [Unknown]
  - Seizure [Unknown]
  - Off label use [Unknown]
  - Cardiac disorder [Unknown]
